FAERS Safety Report 11536562 (Version 2)
Quarter: 2015Q4

REPORT INFORMATION
  Report Type: Spontaneous
  Country: US (occurrence: None)
  Receive Date: 20150922
  Receipt Date: 20151002
  Transmission Date: 20160304
  Serious: Yes (Other)
  Sender: FDA-Public Use
  Company Number: US-MDT-ADR-2015-01823

PATIENT
  Age: 55 Year
  Sex: Female

DRUGS (2)
  1. MARCAINE [Suspect]
     Active Substance: BUPIVACAINE HYDROCHLORIDE
     Dosage: 0.9372 MG/DAY
  2. BACLOFEN INTRATHECAL (1000 MCG/ML) [Suspect]
     Active Substance: BACLOFEN
     Dosage: 234.3 MCG/DAY

REACTIONS (2)
  - Disorientation [None]
  - Confusional state [None]
